FAERS Safety Report 4665332-0 (Version None)
Quarter: 2005Q2

REPORT INFORMATION
  Report Type: 
  Country: None (occurrence: None)
  Receive Date: 20050517
  Receipt Date: 20050201
  Transmission Date: 20051028
  Serious: No
  Sender: FDA-Public Use
  Company Number: S05-USA-00530-01

PATIENT
  Age: 84 Year
  Sex: Female

DRUGS (5)
  1. NAMENDA [Suspect]
     Indication: DEMENTIA ALZHEIMER'S TYPE
     Dosage: 10 MG BID PO
     Route: 048
     Dates: start: 20040830
  2. NAMENDA [Suspect]
     Indication: DEMENTIA ALZHEIMER'S TYPE
     Dosage: 5 MG QD PO
     Route: 048
     Dates: start: 20040809, end: 20040815
  3. NAMENDA [Suspect]
     Indication: DEMENTIA ALZHEIMER'S TYPE
     Dosage: 5 MG BID PO
     Route: 048
     Dates: start: 20040816, end: 20040822
  4. NAMENDA [Suspect]
     Indication: DEMENTIA ALZHEIMER'S TYPE
     Dosage: 15 MG QD PO
     Route: 048
     Dates: start: 20040823, end: 20040829
  5. ATENOLOL [Concomitant]

REACTIONS (3)
  - COUGH [None]
  - FEELING COLD [None]
  - HYPERHIDROSIS [None]
